FAERS Safety Report 23473974 (Version 3)
Quarter: 2024Q1

REPORT INFORMATION
  Report Type: Spontaneous
  Country: IT (occurrence: None)
  Receive Date: 20240203
  Receipt Date: 20240229
  Transmission Date: 20240410
  Serious: Yes (Hospitalization)
  Sender: FDA-Public Use
  Company Number: IT-ROCHE-3501634

PATIENT
  Age: 68 Year
  Sex: Male

DRUGS (1)
  1. OCREVUS [Suspect]
     Active Substance: OCRELIZUMAB
     Indication: Multiple sclerosis
     Dosage: THE INITIAL DOSE OF 600 MG WAS ADMINISTERED VIA TWO DIFFERENT INTRAVENOUS INFUSIONS: A FIRST INFUSIO
     Route: 042
     Dates: start: 20231023

REACTIONS (1)
  - Pneumonia [Recovered/Resolved]

NARRATIVE: CASE EVENT DATE: 20231106
